FAERS Safety Report 5888241-8 (Version None)
Quarter: 2008Q3

REPORT INFORMATION
  Report Type: 
  Country: None (occurrence: None)
  Receive Date: 20080918
  Receipt Date: 20080908
  Transmission Date: 20090109
  Serious: Yes (Disabling)
  Sender: FDA-Public Use
  Company Number: US-WYE-H05384708

PATIENT
  Sex: Female
  Weight: 54.93 kg

DRUGS (3)
  1. PREMARIN [Suspect]
     Indication: OSTEOPOROSIS
     Dosage: 0.625MG FOR 26 DAYS, OFF 4 DAYS
     Route: 048
     Dates: start: 19771201, end: 20020901
  2. PREMARIN [Suspect]
     Dosage: 0.625MG FOR 26 DAYS, OFF 4 DAYS
     Route: 048
     Dates: start: 20030801
  3. TENORMIN [Concomitant]
     Indication: ARRHYTHMIA

REACTIONS (4)
  - BREAST ENGORGEMENT [None]
  - BREAST ENLARGEMENT [None]
  - BREAST PAIN [None]
  - PHARMACEUTICAL PRODUCT COMPLAINT [None]
